FAERS Safety Report 8367210-2 (Version None)
Quarter: 2012Q2

REPORT INFORMATION
  Report Type: 
  Country: None (occurrence: None)
  Receive Date: 20120517
  Receipt Date: 20120514
  Transmission Date: 20120825
  Serious: Yes (Life-Threatening, Other)
  Sender: FDA-Public Use
  Company Number: PHHY2012GB040814

PATIENT
  Age: 52 Year
  Sex: Female
  Weight: 88.7 kg

DRUGS (20)
  1. FLUCONAZOLE [Suspect]
     Indication: SYSTEMIC CANDIDA
     Dosage: 400 MG, UNK
     Route: 042
     Dates: start: 20120425, end: 20120428
  2. AMOXICILLIN AND CLAVULANATE POTASSIUM [Concomitant]
  3. SENNA-MINT WAF [Concomitant]
  4. TEICOPLANIN [Concomitant]
  5. CALCIUM POLYSTYRENE SULPHONATE [Concomitant]
  6. PREGABALIN [Concomitant]
  7. MOVIPREP [Concomitant]
  8. CLOPIDOGREL [Concomitant]
  9. NOVORAPID [Concomitant]
  10. AMITRIPTYLINE HCL [Concomitant]
  11. FENTANYL-100 [Concomitant]
  12. LANTUS [Concomitant]
  13. SATIVEX [Concomitant]
  14. ENOXAPARIN [Concomitant]
  15. HUMAN ACTRAPID [Concomitant]
  16. OXYCODONE HCL [Concomitant]
  17. DOMPERIDONE [Concomitant]
  18. ROSUVASTATIN [Concomitant]
  19. PIPERACILLIN AND TAZOBACTAM [Concomitant]
  20. VENLAFAXINE [Concomitant]

REACTIONS (1)
  - HYPERKALAEMIA [None]
